FAERS Safety Report 9030984 (Version 3)
Quarter: 2013Q3

REPORT INFORMATION
  Report Type: Spontaneous
  Country: US (occurrence: US)
  Receive Date: 20130123
  Receipt Date: 20130717
  Transmission Date: 20140515
  Serious: Yes (Other)
  Sender: FDA-Public Use
  Company Number: US-ROCHE-784515

PATIENT
  Age: 25 Year
  Sex: Female
  Weight: 44.49 kg

DRUGS (4)
  1. ACCUTANE [Suspect]
     Indication: ACNE
     Route: 065
     Dates: start: 19990824, end: 20000110
  2. ACCUTANE [Suspect]
     Route: 065
     Dates: start: 200009, end: 200101
  3. ACCUTANE [Suspect]
     Route: 065
     Dates: start: 20020814, end: 20030101
  4. ORTHO TRI-CYCLEN [Concomitant]
     Route: 065
     Dates: start: 1999

REACTIONS (10)
  - Emotional distress [Unknown]
  - Dry skin [Unknown]
  - Loose tooth [Unknown]
  - Anal fissure [Unknown]
  - Irritable bowel syndrome [Unknown]
  - Xerosis [Unknown]
  - Colitis ulcerative [Unknown]
  - Inflammatory bowel disease [Unknown]
  - Enthesopathy [Unknown]
  - Fatigue [Unknown]
